FAERS Safety Report 23907695 (Version 2)
Quarter: 2024Q3

REPORT INFORMATION
  Report Type: Spontaneous
  Country: US (occurrence: US)
  Receive Date: 20240528
  Receipt Date: 20240718
  Transmission Date: 20241016
  Serious: No
  Sender: Haleon PLC
  Company Number: US-HALEON-2178138

PATIENT

DRUGS (1)
  1. TUMS CHEWY BITES TROPICAL FRUIT SMOOTHIE [Suspect]
     Active Substance: CALCIUM CARBONATE
     Indication: Gastrooesophageal reflux disease

REACTIONS (1)
  - Product use in unapproved indication [Unknown]
